FAERS Safety Report 24551114 (Version 1)
Quarter: 2024Q4

REPORT INFORMATION
  Report Type: Spontaneous
  Country: FR (occurrence: FR)
  Receive Date: 20241025
  Receipt Date: 20241025
  Transmission Date: 20250115
  Serious: Yes (Death)
  Sender: PURDUE
  Company Number: FR-PURDUE-USA-2024-0312816

PATIENT
  Age: 80 Year
  Sex: Male

DRUGS (1)
  1. OXYCODONE HYDROCHLORIDE [Suspect]
     Active Substance: OXYCODONE HYDROCHLORIDE
     Indication: Pain
     Dosage: 10 MILLIGRAM, Q6H
     Route: 048
     Dates: start: 20240906, end: 20240909

REACTIONS (1)
  - Distal intestinal obstruction syndrome [Fatal]

NARRATIVE: CASE EVENT DATE: 20240913
